FAERS Safety Report 20650944 (Version 1)
Quarter: 2022Q1

REPORT INFORMATION
  Report Type: Spontaneous
  Country: US (occurrence: US)
  Receive Date: 20220329
  Receipt Date: 20220329
  Transmission Date: 20220424
  Serious: Yes (Life-Threatening, Hospitalization, Other)
  Sender: FDA-Public Use
  Company Number: US-PFIZER INC-202200269103

PATIENT
  Age: 41 Year
  Sex: Female
  Weight: 61.224 kg

DRUGS (2)
  1. DEPO-PROVERA [Suspect]
     Active Substance: MEDROXYPROGESTERONE ACETATE
     Indication: Contraception
     Dosage: UNK, EVERY 3 MONTHS
     Dates: start: 20000426, end: 20191124
  2. TRILEPTAL [Concomitant]
     Active Substance: OXCARBAZEPINE
     Dosage: UNK
     Dates: end: 20191124

REACTIONS (11)
  - Myocardial infarction [Unknown]
  - Cerebrovascular accident [Unknown]
  - Blindness [Unknown]
  - Deafness [Unknown]
  - Hypertension [Unknown]
  - Idiopathic intracranial hypertension [Not Recovered/Not Resolved]
  - Illness anxiety disorder [Unknown]
  - Munchausen^s syndrome [Unknown]
  - Brain oedema [Unknown]
  - Tinnitus [Unknown]
  - Hypoacusis [Unknown]

NARRATIVE: CASE EVENT DATE: 20000426
